FAERS Safety Report 16083830 (Version 2)
Quarter: 2019Q3

REPORT INFORMATION
  Report Type: Spontaneous
  Country: US (occurrence: US)
  Receive Date: 20190318
  Receipt Date: 20190920
  Transmission Date: 20191004
  Serious: No
  Sender: FDA-Public Use
  Company Number: US-MYLANLABS-2019M1018043

PATIENT
  Sex: Female
  Weight: 66 kg

DRUGS (1)
  1. DIPHENOXYLATE HYDROCHLORIDE AND ATROPINE SULFATE TABLETS, USP [Suspect]
     Active Substance: ATROPINE\DIPHENOXYLATE HYDROCHLORIDE
     Indication: DIARRHOEA
     Dosage: ONE TO TWO TABLETS BY MOUTH FOUR TIMES A DAY AS NEEDED NO MORE THAN 8
     Route: 048

REACTIONS (2)
  - Recalled product administered [Unknown]
  - Drug ineffective [Unknown]
